APPROVED DRUG PRODUCT: SEPTRA
Active Ingredient: SULFAMETHOXAZOLE; TRIMETHOPRIM
Strength: 400MG;80MG
Dosage Form/Route: TABLET;ORAL
Application: N017376 | Product #001
Applicant: MONARCH PHARMACEUTICALS LLC
Approved: Approved Prior to Jan 1, 1982 | RLD: No | RS: No | Type: DISCN